FAERS Safety Report 7443363-5 (Version None)
Quarter: 2011Q2

REPORT INFORMATION
  Report Type: 
  Country: None (occurrence: None)
  Receive Date: 20110428
  Receipt Date: 20110415
  Transmission Date: 20111010
  Serious: Yes (Death, Hospitalization, Other)
  Sender: FDA-Public Use
  Company Number: PHEH2008US11042

PATIENT
  Sex: Male
  Weight: 80.726 kg

DRUGS (35)
  1. NORCO [Concomitant]
  2. FENTANYL [Concomitant]
  3. VITAMIN B6 [Concomitant]
  4. ZOMETA [Suspect]
     Indication: MULTIPLE MYELOMA
     Dosage: 4 MG, QMO
     Route: 042
     Dates: start: 20030101, end: 20060301
  5. DECADRON [Concomitant]
     Dosage: 4 MG, QD
  6. AMOXICILLIN [Concomitant]
     Dosage: 500 MG, UNK
     Dates: start: 20060101
  7. DEXAMETHASONE [Concomitant]
     Dosage: 40 MG, QW
  8. BACTRIM [Concomitant]
  9. MULTI-VIT [Concomitant]
  10. VINCRISTINE [Concomitant]
     Indication: MULTIPLE MYELOMA
  11. COUMADIN [Concomitant]
  12. SYNTHROID [Concomitant]
     Dosage: 0.75 MG, UNK
     Dates: start: 20030101
  13. NEXIUM [Concomitant]
     Dosage: 40 MG, UNK
     Dates: start: 20030101
  14. CHEMOTHERAPEUTICS NOS [Concomitant]
     Indication: NEOPLASM MALIGNANT
  15. ADRIAMYCIN PFS [Concomitant]
     Indication: MULTIPLE MYELOMA
  16. THALIDOMIDE [Concomitant]
     Dosage: 3 MG, QD
  17. REVLIMID [Concomitant]
  18. DEXAMETHASONE [Concomitant]
     Dosage: 4 MG, UNK
     Dates: start: 20030101
  19. WELCHOL [Concomitant]
  20. CIPRO [Concomitant]
     Dosage: 500 MG, UNK
     Dates: start: 19970101
  21. WARFARIN [Concomitant]
     Dosage: 1 MG, UNK
     Dates: start: 20030101
  22. FLUCONAZOLE [Concomitant]
  23. COMPAZINE [Concomitant]
  24. FLUCONAZOLE [Concomitant]
  25. AREDIA [Suspect]
  26. GARLIC [Concomitant]
  27. NEUTRA-PHOS [Concomitant]
  28. AMOXICILLIN [Concomitant]
     Dosage: 500 MG, TID
  29. BISACODYL [Concomitant]
  30. DURAGESIC [Concomitant]
  31. RED BLOOD CELLS [Concomitant]
  32. VITAMIN C [Concomitant]
  33. COUMADIN [Concomitant]
  34. OXYTOCIN [Concomitant]
  35. DEXAMETHASONE [Concomitant]

REACTIONS (41)
  - NEOPLASM MALIGNANT [None]
  - INTERVERTEBRAL DISC DEGENERATION [None]
  - CARDIO-RESPIRATORY ARREST [None]
  - OESOPHAGEAL ULCER [None]
  - OESOPHAGEAL HYPOMOTILITY [None]
  - RASH MACULO-PAPULAR [None]
  - ERYTHEMA NODOSUM [None]
  - ATELECTASIS [None]
  - BARRETT'S OESOPHAGUS [None]
  - GOITRE [None]
  - NODULE [None]
  - RASH PRURITIC [None]
  - BLOOD PHOSPHORUS DECREASED [None]
  - OSTEOPENIA [None]
  - MULTIPLE MYELOMA [None]
  - TOOTH DISORDER [None]
  - PANCREATITIS [None]
  - CHEST PAIN [None]
  - ANAEMIA [None]
  - HYPERCALCAEMIA [None]
  - INTERVERTEBRAL DISC PROTRUSION [None]
  - BONE SARCOMA [None]
  - SCOLIOSIS [None]
  - MASS [None]
  - BACK PAIN [None]
  - ALTERED STATE OF CONSCIOUSNESS [None]
  - IRRITABILITY [None]
  - OEDEMA PERIPHERAL [None]
  - SPINAL OSTEOARTHRITIS [None]
  - BONE DISORDER [None]
  - TOOTHACHE [None]
  - CONJUNCTIVAL HAEMORRHAGE [None]
  - OSTEOARTHRITIS [None]
  - FATIGUE [None]
  - ANXIETY [None]
  - BLOOD DISORDER [None]
  - NEUROPATHY PERIPHERAL [None]
  - HIATUS HERNIA [None]
  - BONE LESION [None]
  - DYSPNOEA [None]
  - ASTHENIA [None]
